FAERS Safety Report 24129697 (Version 1)
Quarter: 2024Q3

REPORT INFORMATION
  Report Type: Spontaneous
  Country: GB (occurrence: GB)
  Receive Date: 20240724
  Receipt Date: 20240724
  Transmission Date: 20241016
  Serious: Yes (Other)
  Sender: MDD OPERATIONS
  Company Number: GB-MHRA-TPP2336365C8992204YC1720181798842

PATIENT
  Age: 81 Year
  Sex: Female

DRUGS (11)
  1. SAFINAMIDE [Suspect]
     Active Substance: SAFINAMIDE
     Indication: Product used for unknown indication
     Dosage: 100MG
  2. BETAMETHASONE VALERATE [Concomitant]
     Active Substance: BETAMETHASONE VALERATE
     Indication: Ill-defined disorder
     Dosage: POTENT STEROID CREAM
     Dates: start: 20240409, end: 20240416
  3. CODEINE PHOSPHATE [Concomitant]
     Active Substance: CODEINE PHOSPHATE
     Indication: Ill-defined disorder
     Dates: start: 20240415, end: 20240513
  4. AMITRIPTYLINE HYDROCHLORIDE [Concomitant]
     Active Substance: AMITRIPTYLINE HYDROCHLORIDE
     Indication: Ill-defined disorder
     Dates: start: 20240515, end: 20240612
  5. APIXABAN [Concomitant]
     Active Substance: APIXABAN
     Indication: Ill-defined disorder
     Dates: start: 20231229
  6. ATORVASTATIN [Concomitant]
     Active Substance: ATORVASTATIN
     Indication: Ill-defined disorder
     Dates: start: 20231229
  7. BISOPROLOL [Concomitant]
     Active Substance: BISOPROLOL\BISOPROLOL FUMARATE
     Indication: Ill-defined disorder
     Dates: start: 20231229
  8. CANDESARTAN [Concomitant]
     Active Substance: CANDESARTAN
     Indication: Ill-defined disorder
     Dates: start: 20231229
  9. BENSERAZIDE HYDROCHLORIDE\LEVODOPA [Concomitant]
     Active Substance: BENSERAZIDE HYDROCHLORIDE\LEVODOPA
     Indication: Ill-defined disorder
     Dates: start: 20231229
  10. LANSOPRAZOLE [Concomitant]
     Active Substance: LANSOPRAZOLE
     Indication: Ill-defined disorder
     Dates: start: 20231229
  11. ACETAMINOPHEN [Concomitant]
     Active Substance: ACETAMINOPHEN
     Indication: Ill-defined disorder
     Dates: start: 20231229

REACTIONS (3)
  - Gastrooesophageal reflux disease [Recovered/Resolved]
  - Diarrhoea [Recovered/Resolved]
  - Abdominal discomfort [Unknown]
